FAERS Safety Report 13307793 (Version 1)
Quarter: 2017Q1

REPORT INFORMATION
  Report Type: Report from Study
  Country: None (occurrence: RO)
  Receive Date: 20170308
  Receipt Date: 20170308
  Transmission Date: 20170428
  Serious: Yes (Hospitalization)
  Sender: FDA-Public Use
  Company Number: RO-ABBVIE-17P-135-1896590-00

PATIENT
  Age: 77 Year
  Sex: Female

DRUGS (1)
  1. DUODOPA [Suspect]
     Active Substance: CARBIDOPA\LEVODOPA
     Indication: PARKINSON^S DISEASE
     Dosage: 16/24 H: MD 5.5 ML,CR=1.5 ML/H,ED 1.5 ML
     Route: 050
     Dates: start: 20110822

REACTIONS (4)
  - General physical condition abnormal [Recovered/Resolved]
  - Anxiety [Recovered/Resolved]
  - Stoma site haemorrhage [Recovered/Resolved]
  - Panic attack [Recovered/Resolved]

NARRATIVE: CASE EVENT DATE: 20170228
